FAERS Safety Report 10166768 (Version 1)
Quarter: 2014Q2

REPORT INFORMATION
  Report Type: Spontaneous
  Country: US (occurrence: None)
  Receive Date: 20140509
  Receipt Date: 20140509
  Transmission Date: 20141212
  Serious: Yes (Other)
  Sender: FDA-Public Use
  Company Number: None

PATIENT
  Age: 36 Year
  Sex: Female
  Weight: 101.61 kg

DRUGS (7)
  1. GILENYA [Suspect]
     Indication: MULTIPLE SCLEROSIS
     Route: 048
     Dates: start: 20140320, end: 20140425
  2. BACLOFEN [Concomitant]
  3. HCTZ [Concomitant]
  4. ALBUTEROL [Concomitant]
  5. SINGULAR [Concomitant]
  6. KLONOPIN [Concomitant]
  7. MULTIVITAMIN [Concomitant]

REACTIONS (7)
  - Dyspnoea [None]
  - Abdominal pain upper [None]
  - Nausea [None]
  - Vomiting [None]
  - Fatigue [None]
  - Lethargy [None]
  - Drug-induced liver injury [None]
